FAERS Safety Report 11893465 (Version 5)
Quarter: 2016Q3

REPORT INFORMATION
  Report Type: Spontaneous
  Country: US (occurrence: US)
  Receive Date: 20160106
  Receipt Date: 20160826
  Transmission Date: 20161109
  Serious: Yes (Other)
  Sender: FDA-Public Use
  Company Number: US-TEVA-622628USA

PATIENT
  Age: 40 Year
  Sex: Female

DRUGS (14)
  1. RABEPRAZOLE [Concomitant]
     Active Substance: RABEPRAZOLE
  2. SYNTHROID [Concomitant]
     Active Substance: LEVOTHYROXINE SODIUM
  3. ACYCLOVIR. [Concomitant]
     Active Substance: ACYCLOVIR
  4. COENZYME Q10 [Concomitant]
     Active Substance: UBIDECARENONE
  5. DHEA BIOIDENTICAL HORMONES [Concomitant]
  6. NADOLOL. [Concomitant]
     Active Substance: NADOLOL
  7. SUCRALFATE. [Concomitant]
     Active Substance: SUCRALFATE
  8. ACYCLOVIR. [Concomitant]
     Active Substance: ACYCLOVIR
  9. ADRENAL THYTROPHIN PMG [Concomitant]
  10. FEXOFENADINE [Concomitant]
     Active Substance: FEXOFENADINE\FEXOFENADINE HYDROCHLORIDE
  11. POTASSIUM [Concomitant]
     Active Substance: POTASSIUM
  12. ZECUITY [Suspect]
     Active Substance: SUMATRIPTAN SUCCINATE
     Indication: MIGRAINE
     Dosage: 6.5 MG/4 HR
     Route: 062
     Dates: start: 201512, end: 201512
  13. ODANSETRON [Concomitant]
     Active Substance: ONDANSETRON
  14. VITAMIN D3 [Concomitant]
     Active Substance: CHOLECALCIFEROL

REACTIONS (16)
  - Application site erythema [Recovered/Resolved]
  - Application site bruise [Recovered/Resolved]
  - Application site irritation [Recovered/Resolved]
  - Rash [Recovered/Resolved]
  - Application site pain [Recovered/Resolved]
  - Application site papules [Recovered/Resolved]
  - Chemical burn of skin [Recovered/Resolved]
  - Application site urticaria [Recovered/Resolved]
  - Application site discolouration [Recovered/Resolved]
  - Application site pruritus [Recovered/Resolved]
  - Device leakage [Recovered/Resolved]
  - Device battery issue [Recovered/Resolved]
  - Application site paraesthesia [Recovered/Resolved]
  - Application site warmth [Recovered/Resolved]
  - Application site burn [Recovered/Resolved]
  - Application site discomfort [Recovered/Resolved]

NARRATIVE: CASE EVENT DATE: 201512
